FAERS Safety Report 17469809 (Version 1)
Quarter: 2020Q1

REPORT INFORMATION
  Report Type: Spontaneous
  Country: US (occurrence: US)
  Receive Date: 20200227
  Receipt Date: 20200227
  Transmission Date: 20200409
  Serious: No
  Sender: FDA-Public Use
  Company Number: US-OXFORD PHARMACEUTICALS, LLC-2019OXF00096

PATIENT
  Sex: Female
  Weight: 75.74 kg

DRUGS (3)
  1. METHOCARBAMOL. [Suspect]
     Active Substance: METHOCARBAMOL
     Indication: MUSCLE SPASMS
     Dosage: UNK UNK, AS NEEDED
     Route: 048
     Dates: start: 20121106
  2. METHOCARBAMOL. [Suspect]
     Active Substance: METHOCARBAMOL
     Indication: MUSCLE STRAIN
     Dosage: UNK UNK, AS NEEDED
     Route: 048
     Dates: start: 20130103, end: 2013
  3. METHOCARBAMOL. [Suspect]
     Active Substance: METHOCARBAMOL
     Indication: ARTHROPATHY

REACTIONS (5)
  - Constipation [Recovering/Resolving]
  - Muscle spasms [Unknown]
  - Pneumonia [Unknown]
  - Fall [Unknown]
  - Musculoskeletal chest pain [Unknown]

NARRATIVE: CASE EVENT DATE: 2019
